FAERS Safety Report 6701500-1 (Version None)
Quarter: 2010Q2

REPORT INFORMATION
  Report Type: 
  Country: None (occurrence: None)
  Receive Date: 20100429
  Receipt Date: 20100422
  Transmission Date: 20101027
  Serious: Yes (Hospitalization)
  Sender: FDA-Public Use
  Company Number: IT-JNJFOC-20100306817

PATIENT
  Sex: Female

DRUGS (7)
  1. INTELENCE [Suspect]
     Indication: HIV INFECTION
     Route: 048
  2. NORVIR [Concomitant]
     Indication: HIV INFECTION
     Route: 048
  3. NORVIR [Concomitant]
     Route: 048
  4. PREZISTA [Concomitant]
     Indication: HIV INFECTION
  5. PREZISTA [Concomitant]
  6. TENOFOVIR [Concomitant]
     Indication: HIV INFECTION
     Route: 048
  7. TENOFOVIR [Concomitant]
     Route: 048

REACTIONS (5)
  - COUGH [None]
  - HYPERSENSITIVITY [None]
  - PYREXIA [None]
  - TRANSAMINASES INCREASED [None]
  - URTICARIA PAPULAR [None]
